FAERS Safety Report 21722600 (Version 1)
Quarter: 2022Q4

REPORT INFORMATION
  Report Type: Spontaneous
  Country: CN (occurrence: CN)
  Receive Date: 20221213
  Receipt Date: 20221213
  Transmission Date: 20230113
  Serious: Yes (Other)
  Sender: FDA-Public Use
  Company Number: CN-PFIZER INC-PV202200116280

PATIENT
  Age: 27 Year
  Sex: Female
  Weight: 50 kg

DRUGS (9)
  1. LINEZOLID [Interacting]
     Active Substance: LINEZOLID
     Indication: Soft tissue infection
     Dosage: 0.6 G, 1X/DAY
     Route: 048
     Dates: start: 20190803, end: 20191224
  2. LINEZOLID [Interacting]
     Active Substance: LINEZOLID
     Indication: Mycobacterium abscessus infection
  3. CLARITHROMYCIN [Interacting]
     Active Substance: CLARITHROMYCIN
     Indication: Soft tissue infection
     Dosage: 0.5 G, 2X/DAY
     Route: 048
     Dates: start: 20190803, end: 20191224
  4. CLARITHROMYCIN [Interacting]
     Active Substance: CLARITHROMYCIN
     Indication: Mycobacterium abscessus infection
  5. AMIKACIN SULFATE [Suspect]
     Active Substance: AMIKACIN SULFATE
     Indication: Soft tissue infection
     Dosage: 0.6 G, 1X/DAY
     Route: 041
     Dates: start: 20190803, end: 20191212
  6. AMIKACIN SULFATE [Suspect]
     Active Substance: AMIKACIN SULFATE
     Indication: Mycobacterium abscessus infection
  7. CEFOXITIN SODIUM [Suspect]
     Active Substance: CEFOXITIN SODIUM
     Indication: Soft tissue infection
     Dosage: 2 G, 1X/8H
     Route: 041
     Dates: start: 20190803
  8. CEFOXITIN SODIUM [Suspect]
     Active Substance: CEFOXITIN SODIUM
     Indication: Mycobacterium abscessus infection
     Dosage: 3 G,1X/8H
     Route: 041
     Dates: start: 20191212
  9. METHYLCOBALAMIN [Concomitant]
     Active Substance: METHYLCOBALAMIN
     Indication: Neuropathy peripheral
     Dosage: 0.5 MG, 3X/DAY
     Route: 048
     Dates: start: 20191212

REACTIONS (4)
  - Drug interaction [Recovering/Resolving]
  - Drug level increased [Recovering/Resolving]
  - Neuropathy peripheral [Recovering/Resolving]
  - Off label use [Unknown]

NARRATIVE: CASE EVENT DATE: 20190101
